FAERS Safety Report 4548764-0 (Version None)
Quarter: 2005Q1

REPORT INFORMATION
  Report Type: 
  Country: None (occurrence: None)
  Receive Date: 20050107
  Receipt Date: 20050107
  Transmission Date: 20050727
  Serious: Yes (Hospitalization)
  Sender: FDA-Public Use
  Company Number: None

PATIENT
  Age: 78 Year
  Sex: Male
  Weight: 74.8435 kg

DRUGS (2)
  1. WARFARIN   5MG [Suspect]
     Indication: ATRIAL FIBRILLATION
     Dosage: 5MG   Q DAY   ORAL
     Route: 048
     Dates: start: 20030210, end: 20050106
  2. WARFARIN   5MG [Suspect]
     Indication: CARDIAC FAILURE CONGESTIVE
     Dosage: 5MG   Q DAY   ORAL
     Route: 048
     Dates: start: 20030210, end: 20050106

REACTIONS (4)
  - DRUG TOXICITY [None]
  - HAEMATOCHEZIA [None]
  - INTERNATIONAL NORMALISED RATIO INCREASED [None]
  - RECTAL HAEMORRHAGE [None]
